FAERS Safety Report 22319554 (Version 2)
Quarter: 2023Q2

REPORT INFORMATION
  Report Type: Report from Study
  Country: US (occurrence: US)
  Receive Date: 20230515
  Receipt Date: 20230601
  Transmission Date: 20230722
  Serious: Yes (Other)
  Sender: FDA-Public Use
  Company Number: US-MYLANLABS-2023M1049403

PATIENT
  Age: 26 Year
  Sex: Female

DRUGS (2)
  1. AMNESTEEM [Suspect]
     Active Substance: ISOTRETINOIN
     Indication: Product used for unknown indication
     Dosage: 80 MILLIGRAM, QD
     Route: 065
     Dates: start: 20220907, end: 20230424
  2. AMNESTEEM [Suspect]
     Active Substance: ISOTRETINOIN
     Dosage: UNK
     Route: 065
     Dates: end: 20230407

REACTIONS (2)
  - Maternal exposure during pregnancy [Unknown]
  - Helicobacter infection [Not Recovered/Not Resolved]

NARRATIVE: CASE EVENT DATE: 20230407
